FAERS Safety Report 9302594 (Version 1)
Quarter: 2013Q2

REPORT INFORMATION
  Report Type: Spontaneous
  Country: IT (occurrence: IT)
  Receive Date: 20130522
  Receipt Date: 20130522
  Transmission Date: 20140414
  Serious: Yes (Other)
  Sender: FDA-Public Use
  Company Number: IT-ACCORD-017714

PATIENT
  Age: 68 Year
  Sex: Male

DRUGS (9)
  1. GEMCITABINE [Suspect]
     Indication: BLADDER CANCER
     Dosage: DRUG WAS NOT DISCONTINUED.
     Route: 042
     Dates: start: 20130318, end: 20130318
  2. CISPLATIN [Suspect]
     Indication: BLADDER CANCER
     Dosage: DRUG WAS NOT DISCONTINUED.
     Route: 042
     Dates: start: 20130318, end: 20130318
  3. TARGIN [Concomitant]
     Dosage: PHARMACEUTICAL FORM-ORAL
  4. VOLTFAST [Concomitant]
     Route: 048
  5. PARIET [Concomitant]
     Route: 048
  6. LASIX [Concomitant]
     Route: 042
     Dates: start: 20130318, end: 20130318
  7. RANIDIL [Concomitant]
     Route: 042
     Dates: start: 20130318, end: 20130318
  8. ONDANSETRON [Concomitant]
     Indication: BLADDER CANCER
     Dosage: (A04AA01)
     Route: 042
     Dates: start: 20130318, end: 20130318
  9. SOLDESAM [Concomitant]
     Dosage: SOLDESAM 8 MG/2 ML SOLUTION FOR INJECTION 3 VIALS OF 2 ML (H02AB02)
     Route: 042

REACTIONS (6)
  - Abdominal pain [Recovering/Resolving]
  - Chest pain [Recovering/Resolving]
  - Genital pain [Recovering/Resolving]
  - Formication [Recovering/Resolving]
  - Constipation [Recovering/Resolving]
  - Off label use [Unknown]
